FAERS Safety Report 15392997 (Version 4)
Quarter: 2018Q4

REPORT INFORMATION
  Report Type: Spontaneous
  Country: GB (occurrence: GB)
  Receive Date: 20180917
  Receipt Date: 20181016
  Transmission Date: 20190204
  Serious: Yes (Death, Other)
  Sender: FDA-Public Use
  Company Number: GB-009507513-1809GBR006131

PATIENT
  Age: 37 Year
  Sex: Female

DRUGS (6)
  1. CODEINE [Suspect]
     Active Substance: CODEINE
  2. MORPHINE SULFATE. [Suspect]
     Active Substance: MORPHINE SULFATE
  3. PREGABALIN. [Suspect]
     Active Substance: PREGABALIN
     Dosage: UNK
  4. MIRTAZAPINE. [Suspect]
     Active Substance: MIRTAZAPINE
  5. OXYCODONE [Suspect]
     Active Substance: OXYCODONE
  6. COCAINE [Suspect]
     Active Substance: COCAINE

REACTIONS (2)
  - Cardiac arrest [Fatal]
  - Toxicity to various agents [Fatal]
